FAERS Safety Report 17546300 (Version 1)
Quarter: 2020Q1

REPORT INFORMATION
  Report Type: Not Available
  Country: US (occurrence: US)
  Receive Date: 20200316
  Receipt Date: 20200316
  Transmission Date: 20200409
  Serious: No
  Sender: FDA-Public Use
  Company Number: US-NEUROCRINE BIOSCIENCES INC.-2020NBI00756

PATIENT
  Sex: Female

DRUGS (13)
  1. GABAPENTIN. [Concomitant]
     Active Substance: GABAPENTIN
  2. METOPROLOL. [Concomitant]
     Active Substance: METOPROLOL
  3. OMEPRAZOLE. [Concomitant]
     Active Substance: OMEPRAZOLE
  4. IRON [Concomitant]
     Active Substance: IRON
  5. LORAZEPAM. [Concomitant]
     Active Substance: LORAZEPAM
  6. CARAFATE [Concomitant]
     Active Substance: SUCRALFATE
  7. CLONIDINE. [Concomitant]
     Active Substance: CLONIDINE
  8. MIRENA [Concomitant]
     Active Substance: LEVONORGESTREL
  9. BUSPIRONE [Concomitant]
     Active Substance: BUSPIRONE HYDROCHLORIDE
  10. VRAYLAR [Concomitant]
     Active Substance: CARIPRAZINE
  11. TRINTELLIX [Concomitant]
     Active Substance: VORTIOXETINE HYDROBROMIDE
  12. INGREZZA [Suspect]
     Active Substance: VALBENAZINE
     Indication: TARDIVE DYSKINESIA
     Route: 048
  13. FENOFIBRATE. [Concomitant]
     Active Substance: FENOFIBRATE

REACTIONS (2)
  - Tardive dyskinesia [Unknown]
  - Fatigue [Unknown]
